FAERS Safety Report 6099213-5 (Version None)
Quarter: 2009Q1

REPORT INFORMATION
  Report Type: 
  Country: None (occurrence: None)
  Receive Date: 20090303
  Receipt Date: 20081211
  Transmission Date: 20090719
  Serious: Yes (Hospitalization)
  Sender: FDA-Public Use
  Company Number: ES-JNJFOC-20090206369

PATIENT
  Age: 45 Year
  Sex: Male

DRUGS (6)
  1. INFLIXIMAB [Suspect]
     Dosage: 2 TREATMENT 15 DAYS LATER
     Route: 042
  2. INFLIXIMAB [Suspect]
     Indication: COLITIS ULCERATIVE
     Route: 042
  3. AZATHIOPRINE [Concomitant]
     Indication: COLITIS ULCERATIVE
  4. PREDNISONE [Concomitant]
  5. PREDNISONE [Concomitant]
     Indication: COLITIS ULCERATIVE
  6. MESALAZINE [Concomitant]
     Indication: COLITIS ULCERATIVE

REACTIONS (2)
  - PNEUMOCYSTIS JIROVECI PNEUMONIA [None]
  - RESPIRATORY FAILURE [None]
